FAERS Safety Report 16731974 (Version 2)
Quarter: 2019Q3

REPORT INFORMATION
  Report Type: Spontaneous
  Country: US (occurrence: US)
  Receive Date: 20190822
  Receipt Date: 20190909
  Transmission Date: 20191005
  Serious: Yes (Hospitalization, Other)
  Sender: FDA-Public Use
  Company Number: US-ALLERGAN-1930569US

PATIENT
  Sex: Male

DRUGS (1)
  1. REFRESH OPTIVE ADVANCED [Suspect]
     Active Substance: CARBOXYMETHYLCELLULOSE SODIUM\GLYCERIN\POLYSORBATE 80
     Indication: DRY EYE
     Dosage: DAILY AS NEEDED
     Route: 047
     Dates: start: 2019

REACTIONS (3)
  - Contusion [Recovered/Resolved]
  - Cerebrovascular accident [Unknown]
  - Eye complication associated with device [Recovered/Resolved]

NARRATIVE: CASE EVENT DATE: 201908
